FAERS Safety Report 22134411 (Version 2)
Quarter: 2023Q2

REPORT INFORMATION
  Report Type: Report from Study
  Country: JP (occurrence: JP)
  Receive Date: 20230324
  Receipt Date: 20230403
  Transmission Date: 20230722
  Serious: Yes (Hospitalization)
  Sender: FDA-Public Use
  Company Number: JP-TAIHO-2023-001943

PATIENT
  Age: 74 Year
  Sex: Male
  Weight: 56.9 kg

DRUGS (2)
  1. TIPIRACIL HYDROCHLORIDE\TRIFLURIDINE [Suspect]
     Active Substance: TIPIRACIL HYDROCHLORIDE\TRIFLURIDINE
     Indication: Gastric cancer
     Dosage: DAYS 1 TO 5 REST 2 DAYS (REPEAT TWICE AND THEN REST FOR 14 DAYS), CYCLE 1
     Route: 048
     Dates: start: 20230203
  2. RAMUCIRUMAB [Suspect]
     Active Substance: RAMUCIRUMAB
     Indication: Gastric cancer
     Dosage: DAY 1 TO DAY 15, CYCLE 1
     Route: 042
     Dates: start: 20230203

REACTIONS (1)
  - Oedema peripheral [Recovered/Resolved]

NARRATIVE: CASE EVENT DATE: 20230217
